FAERS Safety Report 4993583-4 (Version None)
Quarter: 2006Q2

REPORT INFORMATION
  Report Type: 
  Country: None (occurrence: None)
  Receive Date: 20060504
  Receipt Date: 20060504
  Transmission Date: 20061013
  Serious: Yes (Life-Threatening)
  Sender: FDA-Public Use
  Company Number: None

PATIENT
  Age: 45 Year
  Sex: Female
  Weight: 51.7 kg

DRUGS (1)
  1. AMIODARONE HCL [Suspect]
     Indication: ATRIAL FIBRILLATION
     Dosage: BOLUS
     Route: 040
     Dates: start: 20060210

REACTIONS (3)
  - CARDIO-RESPIRATORY ARREST [None]
  - FEELING ABNORMAL [None]
  - SKIN DISCOLOURATION [None]
